FAERS Safety Report 7792298-7 (Version None)
Quarter: 2011Q4

REPORT INFORMATION
  Report Type: 
  Country: None (occurrence: None)
  Receive Date: 20111003
  Receipt Date: 20110922
  Transmission Date: 20120403
  Serious: Yes (Hospitalization)
  Sender: FDA-Public Use
  Company Number: PHHY2011CA73096

PATIENT
  Sex: Female

DRUGS (7)
  1. METHOTREXATE [Concomitant]
     Dosage: 7.5 MG, WEEKLY
  2. VITAMIN B-12 [Concomitant]
     Dosage: 1000 UG, 2 X WEEK
  3. RABEPRAZOLE SODIUM [Concomitant]
     Dosage: 20 MG, QD
  4. PREDNISONE [Concomitant]
     Dosage: 10 MG, QD
  5. VITAMIN D [Concomitant]
     Dosage: 2000 IU, UNK
  6. FOLIC ACID [Concomitant]
     Dosage: 5 MG, WEEKLY
  7. ZOLEDRONOC ACID [Suspect]
     Indication: OSTEOPOROSIS
     Dosage: 5 MG, YEARLY
     Route: 042
     Dates: start: 20100826

REACTIONS (3)
  - GASTRIC VOLVULUS [None]
  - MALAISE [None]
  - HIATUS HERNIA [None]
